FAERS Safety Report 4501573-0 (Version None)
Quarter: 2004Q3

REPORT INFORMATION
  Report Type: 
  Country: None (occurrence: None)
  Receive Date: 20040928
  Receipt Date: 20040820
  Transmission Date: 20050211
  Serious: No
  Sender: FDA-Public Use
  Company Number: 04P-163-0271388-00

PATIENT
  Age: 50 Year
  Sex: Female
  Weight: 113.3993 kg

DRUGS (5)
  1. HUMIRA [Suspect]
     Indication: RHEUMATOID ARTHRITIS
     Dosage: 40 MG, 1 IN 2 WK, SUBCUTANEOUS
     Route: 058
     Dates: start: 20030101
  2. METHOTREXATE [Concomitant]
  3. PREDNISONE [Concomitant]
  4. BUCINDOLOL HYDROCHLORIDE [Concomitant]
  5. METHADONE [Concomitant]

REACTIONS (6)
  - CHANGE OF BOWEL HABIT [None]
  - CHROMATURIA [None]
  - HYPERHIDROSIS [None]
  - IMPAIRED HEALING [None]
  - URINARY TRACT INFECTION [None]
  - WEIGHT DECREASED [None]
